FAERS Safety Report 17687218 (Version 1)
Quarter: 2020Q2

REPORT INFORMATION
  Report Type: Spontaneous
  Country: FI (occurrence: FI)
  Receive Date: 20200421
  Receipt Date: 20200421
  Transmission Date: 20200714
  Serious: Yes (Other)
  Sender: FDA-Public Use
  Company Number: FI-SUN PHARMACEUTICAL INDUSTRIES LTD-2020RR-244416

PATIENT
  Age: 46 Year
  Sex: Female

DRUGS (1)
  1. ESOMEPRAZOLE. [Suspect]
     Active Substance: ESOMEPRAZOLE MAGNESIUM
     Indication: DUODENITIS
     Dosage: 80 MILLIGRAM, DAILY
     Route: 065
     Dates: start: 202003

REACTIONS (3)
  - Initial insomnia [Unknown]
  - Eye haematoma [Unknown]
  - Middle insomnia [Unknown]

NARRATIVE: CASE EVENT DATE: 202003
